FAERS Safety Report 5200149-X (Version None)
Quarter: 2006Q4

REPORT INFORMATION
  Report Type: 
  Country: None (occurrence: None)
  Receive Date: 20061016
  Receipt Date: 20060817
  Transmission Date: 20070319
  Serious: No
  Sender: FDA-Public Use
  Company Number: 2006SP003052

PATIENT
  Age: 33 Year
  Sex: Female

DRUGS (3)
  1. LUNESTA [Suspect]
     Indication: DRUG USE FOR UNKNOWN INDICATION
     Dosage: 2 MG;UNKNOWN;ORAL
     Route: 048
     Dates: start: 20060801
  2. FLUOXETINE [Concomitant]
  3. ORAL CONTRACEPTIVE NOS [Concomitant]

REACTIONS (1)
  - DYSGEUSIA [None]
